FAERS Safety Report 19881511 (Version 1)
Quarter: 2021Q3

REPORT INFORMATION
  Report Type: Report from Study
  Country: US (occurrence: US)
  Receive Date: 20210925
  Receipt Date: 20210925
  Transmission Date: 20211014
  Serious: Yes (Other)
  Sender: FDA-Public Use
  Company Number: US-TAKEDA-US202015566

PATIENT
  Sex: Female

DRUGS (4)
  1. COVID?19 VACCINE NOS. [Suspect]
     Active Substance: COVID-19 VACCINE NOS
     Indication: PRODUCT USED FOR UNKNOWN INDICATION
     Route: 065
  2. CELEBREX [Concomitant]
     Active Substance: CELECOXIB
     Indication: INFLAMMATION
  3. SINGULAIR [Concomitant]
     Active Substance: MONTELUKAST SODIUM
     Dosage: UNK UNK, QD
  4. CUVITRU [Suspect]
     Active Substance: HUMAN IMMUNOGLOBULIN G
     Indication: PRIMARY IMMUNODEFICIENCY SYNDROME
     Route: 065

REACTIONS (13)
  - Influenza [Unknown]
  - Injection site pain [Recovered/Resolved]
  - Road traffic accident [Unknown]
  - COVID-19 immunisation [Unknown]
  - Tonsillectomy [Unknown]
  - Weight fluctuation [Unknown]
  - Fibromyalgia [Unknown]
  - Illness [Unknown]
  - Needle issue [Unknown]
  - Hyperthyroidism [Unknown]
  - Blood immunoglobulin A decreased [Unknown]
  - Irritable bowel syndrome [Unknown]
  - Injection site reaction [Recovered/Resolved]
